FAERS Safety Report 13924047 (Version 1)
Quarter: 2017Q3

REPORT INFORMATION
  Report Type: Other
  Country: CA (occurrence: CA)
  Receive Date: 20170831
  Receipt Date: 20170831
  Transmission Date: 20171127
  Serious: Yes (Other)
  Sender: FDA-Public Use
  Company Number: CA-APOTEX-2017AP017152

PATIENT
  Age: 85 Year
  Sex: Male

DRUGS (1)
  1. PRO-AMIODARONE-200 [Suspect]
     Active Substance: AMIODARONE HYDROCHLORIDE
     Indication: VENTRICULAR TACHYCARDIA
     Dosage: UNK
     Route: 065

REACTIONS (2)
  - Neurotoxicity [Unknown]
  - Pulmonary toxicity [Unknown]
